FAERS Safety Report 4772340-8 (Version None)
Quarter: 2005Q3

REPORT INFORMATION
  Report Type: 
  Country: None (occurrence: None)
  Receive Date: 20050916
  Receipt Date: 20050902
  Transmission Date: 20060218
  Serious: Yes (Life-Threatening, Hospitalization)
  Sender: FDA-Public Use
  Company Number: 2005S1007045

PATIENT
  Age: 70 Year
  Sex: Female
  Weight: 32.2054 kg

DRUGS (14)
  1. NITROFURANTOIN [Suspect]
     Indication: PROPHYLAXIS
     Dosage: 50 MG;QD; PO
     Route: 048
     Dates: start: 20030501, end: 20050610
  2. NITROFURANTOIN [Suspect]
     Indication: URINARY TRACT INFECTION
     Dosage: 50 MG;QD; PO
     Route: 048
     Dates: start: 20030501, end: 20050610
  3. PREDNISONE [Concomitant]
  4. PARACETAMOL/HYDROCODONE BITARTRATE [Concomitant]
  5. CYCLOBENZAPRINE HCL [Concomitant]
  6. HYDROCHLORIDE [Concomitant]
  7. FLUTICASONE PROPIONATE [Concomitant]
  8. PSEUDOEPHEDRINE SULFATE/LORATADINE [Concomitant]
  9. GLIPIZIDE [Concomitant]
  10. VALSARTAN [Concomitant]
  11. GABAPENTIN [Concomitant]
  12. PARACETAMOL [Concomitant]
  13. ESOMEPRAZOLE MAGNESIUM [Concomitant]
  14. LEVOTHYROXINE SODIUM [Concomitant]

REACTIONS (3)
  - DRUG HYPERSENSITIVITY [None]
  - IDIOPATHIC PULMONARY FIBROSIS [None]
  - PNEUMONIA [None]
